FAERS Safety Report 10588256 (Version 3)
Quarter: 2015Q2

REPORT INFORMATION
  Report Type: Spontaneous
  Country: IT (occurrence: IT)
  Receive Date: 20141117
  Receipt Date: 20150413
  Transmission Date: 20150821
  Serious: Yes (Other)
  Sender: FDA-Public Use
  Company Number: IT-BRISTOL-MYERS SQUIBB COMPANY-21579586

PATIENT
  Age: 69 Year
  Sex: Female

DRUGS (2)
  1. SOTALEX [Suspect]
     Active Substance: SOTALOL
     Indication: ATRIAL FIBRILLATION
     Dosage: 240 MG, QD
     Route: 048
     Dates: start: 20141030, end: 20141031
  2. COUMADIN [Suspect]
     Active Substance: WARFARIN SODIUM
     Indication: PROPHYLAXIS
     Dosage: UNK
     Route: 048
     Dates: start: 20140101, end: 20141101

REACTIONS (3)
  - Asthenia [Recovering/Resolving]
  - Hepatic enzyme increased [Recovering/Resolving]
  - Presyncope [Recovering/Resolving]

NARRATIVE: CASE EVENT DATE: 20141031
